FAERS Safety Report 7124946-9 (Version None)
Quarter: 2010Q4

REPORT INFORMATION
  Report Type: 
  Country: None (occurrence: None)
  Receive Date: 20101123
  Receipt Date: 20101123
  Transmission Date: 20110411
  Serious: Yes (Hospitalization)
  Sender: FDA-Public Use
  Company Number: None

PATIENT
  Sex: Female
  Weight: 64 kg

DRUGS (3)
  1. MERCAPTOPURINE [Suspect]
     Dosage: 10125 MG
  2. DEXAMETHASONE [Suspect]
     Dosage: 150 MG
  3. METHOTREXATE [Suspect]
     Dosage: 370 MG

REACTIONS (5)
  - ASTHENIA [None]
  - CHILLS [None]
  - COUGH [None]
  - DYSPNOEA [None]
  - PYREXIA [None]
